FAERS Safety Report 17367881 (Version 13)
Quarter: 2020Q4

REPORT INFORMATION
  Report Type: Spontaneous
  Country: US (occurrence: US)
  Receive Date: 20200204
  Receipt Date: 20201126
  Transmission Date: 20210113
  Serious: No
  Sender: FDA-Public Use
  Company Number: US-PFIZER INC-2020031973

PATIENT
  Age: 5 Year
  Sex: Female

DRUGS (10)
  1. NIVESTYM [Suspect]
     Active Substance: FILGRASTIM-AAFI
     Dosage: 15.5 UG, 2X/WEEK
  2. NIVESTYM [Suspect]
     Active Substance: FILGRASTIM-AAFI
     Dosage: 0.285 UG
  3. NIVESTYM [Suspect]
     Active Substance: FILGRASTIM-AAFI
     Indication: NEUTROPENIA
     Dosage: 0.28 ML, 2X/WEEK
     Dates: start: 2019
  4. NIVESTYM [Suspect]
     Active Substance: FILGRASTIM-AAFI
     Dosage: 480 UG
  5. NIVESTYM [Suspect]
     Active Substance: FILGRASTIM-AAFI
     Indication: AUTOIMMUNE NEUTROPENIA
     Dosage: UNK, THREE TIMES WEEKLY
     Dates: start: 2019, end: 2019
  6. NIVESTYM [Suspect]
     Active Substance: FILGRASTIM-AAFI
     Dosage: 0.285 ML, 2X/WEEK (ONCE A DAY MONDAY-THURSDAY)
     Route: 058
  7. NIVESTYM [Suspect]
     Active Substance: FILGRASTIM-AAFI
     Dosage: 85.5 UG, 2X/WEEK {85.5 MCG = 0.285 ML SUBCUTANEOUSLY 2 TIMES A WEEK (MTH) PM}
     Route: 058
  8. NIVESTYM [Suspect]
     Active Substance: FILGRASTIM-AAFI
     Dosage: 0.285 ML, 2X/WEEK {85.5 MCG = 0.285 ML SUBCUTANEOUSLY 2 TIMES A WEEK (MTH) PM}
     Route: 058
  9. NIVESTYM [Suspect]
     Active Substance: FILGRASTIM-AAFI
     Dosage: 300 UG/ML (300 MCG/0.5 ML)
  10. NIVESTYM [Suspect]
     Active Substance: FILGRASTIM-AAFI
     Dosage: 300 UG

REACTIONS (2)
  - Off label use [Unknown]
  - Growth accelerated [Unknown]

NARRATIVE: CASE EVENT DATE: 2019
